FAERS Safety Report 6559014-8 (Version None)
Quarter: 2010Q1

REPORT INFORMATION
  Report Type: 
  Country: None (occurrence: None)
  Receive Date: 20100129
  Receipt Date: 20100118
  Transmission Date: 20100710
  Serious: Yes (Death)
  Sender: FDA-Public Use
  Company Number: JP-MEDIMMUNE-MEDI-0010021

PATIENT
  Age: 6 Month
  Sex: Female
  Weight: 4.13 kg

DRUGS (1)
  1. SYNAGIS [Suspect]
     Route: 030
     Dates: start: 20090701, end: 20091117

REACTIONS (1)
  - SUDDEN DEATH [None]
